FAERS Safety Report 22068248 (Version 1)
Quarter: 2023Q1

REPORT INFORMATION
  Report Type: Report from Study
  Country: US (occurrence: US)
  Receive Date: 20230307
  Receipt Date: 20230307
  Transmission Date: 20230418
  Serious: Yes (Other)
  Sender: FDA-Public Use
  Company Number: US-BEH-2023155940

PATIENT
  Age: 42 Year
  Sex: Female

DRUGS (1)
  1. HAEGARDA [Suspect]
     Active Substance: HUMAN C1-ESTERASE INHIBITOR
     Indication: Hereditary angioedema
     Route: 058

REACTIONS (6)
  - Hereditary angioedema [Unknown]
  - Injection site pain [Unknown]
  - Bone pain [Unknown]
  - Influenza like illness [Unknown]
  - No adverse event [Unknown]
  - Intentional product misuse [Unknown]
